FAERS Safety Report 5819125-9 (Version None)
Quarter: 2008Q3

REPORT INFORMATION
  Report Type: 
  Country: None (occurrence: None)
  Receive Date: 20080723
  Receipt Date: 20080707
  Transmission Date: 20090109
  Serious: Yes (Other)
  Sender: FDA-Public Use
  Company Number: BE-GENENTECH-264058

PATIENT
  Sex: Female

DRUGS (10)
  1. XOLAIR [Suspect]
     Indication: ASTHMA
     Dosage: 375 MG, 2/MONTH
     Route: 058
     Dates: start: 20070601
  2. DILTIAZEM HCL [Concomitant]
     Indication: DRUG USE FOR UNKNOWN INDICATION
  3. TAMBOCOR [Concomitant]
     Indication: DRUG USE FOR UNKNOWN INDICATION
  4. XYZAL [Concomitant]
     Indication: DRUG USE FOR UNKNOWN INDICATION
  5. SINGULAIR [Concomitant]
     Indication: DRUG USE FOR UNKNOWN INDICATION
  6. OMEPRAZOLE [Concomitant]
     Indication: DRUG USE FOR UNKNOWN INDICATION
  7. LASIX [Concomitant]
     Indication: DRUG USE FOR UNKNOWN INDICATION
  8. ESTULIC [Concomitant]
     Indication: DRUG USE FOR UNKNOWN INDICATION
  9. BUDESONIDE [Concomitant]
     Indication: DRUG USE FOR UNKNOWN INDICATION
  10. ADALAT [Concomitant]
     Indication: DRUG USE FOR UNKNOWN INDICATION

REACTIONS (3)
  - ARRHYTHMIA [None]
  - OEDEMA PERIPHERAL [None]
  - VENOUS INSUFFICIENCY [None]
